FAERS Safety Report 19767799 (Version 2)
Quarter: 2022Q1

REPORT INFORMATION
  Report Type: Spontaneous
  Country: US (occurrence: US)
  Receive Date: 20210830
  Receipt Date: 20220111
  Transmission Date: 20220423
  Serious: No
  Sender: FDA-Public Use
  Company Number: US-GILEAD-2021-0545379

PATIENT
  Age: 49 Year
  Sex: Male

DRUGS (2)
  1. VIREAD [Suspect]
     Active Substance: TENOFOVIR DISOPROXIL FUMARATE
     Indication: HIV infection
     Dosage: UNK
     Route: 048
     Dates: start: 20011030, end: 20151231
  2. VIREAD [Suspect]
     Active Substance: TENOFOVIR DISOPROXIL FUMARATE
     Dosage: UNK
     Route: 048
     Dates: start: 20020414, end: 20111012

REACTIONS (3)
  - Bone density decreased [Unknown]
  - Tooth loss [Unknown]
  - Bone loss [Not Recovered/Not Resolved]

NARRATIVE: CASE EVENT DATE: 20111115
